FAERS Safety Report 7603382-2 (Version None)
Quarter: 2011Q3

REPORT INFORMATION
  Report Type: 
  Country: None (occurrence: None)
  Receive Date: 20110712
  Receipt Date: 20110707
  Transmission Date: 20111222
  Serious: Yes (Death, Hospitalization)
  Sender: FDA-Public Use
  Company Number: PHHO2011AR11759

PATIENT
  Sex: Male
  Weight: 71 kg

DRUGS (10)
  1. BLINDED NO TREATMENT RECEIVED [Suspect]
     Dosage: NO TREATMENT
  2. PLACEBO [Suspect]
     Dosage: NO TREATMENT
  3. BLINDED QVA149 [Suspect]
     Dosage: NO TREATMENT
  4. ENALAPRIL MALEATE [Concomitant]
     Indication: HYPERTENSION
     Dosage: 5 MG, QD
     Route: 048
     Dates: start: 20020101
  5. BLINDED NVA237 [Suspect]
     Dosage: NO TREATMENT
  6. ATROVENT [Concomitant]
     Indication: CHRONIC OBSTRUCTIVE PULMONARY DISEASE
     Dosage: 40 UG, QID
     Dates: start: 20101204, end: 20110426
  7. BLINDED QAB149 [Suspect]
     Dosage: NO TREATMENT
  8. BLINDED TIOTROPIUM [Suspect]
     Dosage: NO TREATMENT
  9. ALBUTEROL [Concomitant]
     Indication: CHRONIC OBSTRUCTIVE PULMONARY DISEASE
     Dosage: 200 UG, PRN
     Dates: start: 20020101
  10. COMPARATOR TIOTROPIUM [Suspect]
     Dosage: 18 UG, QD
     Route: 048
     Dates: start: 20110510

REACTIONS (1)
  - DEATH [None]
